FAERS Safety Report 10235145 (Version 1)
Quarter: 2014Q1

REPORT INFORMATION
  Report Type: Spontaneous
  Country: US (occurrence: None)
  Receive Date: 20140306
  Receipt Date: 20140306
  Transmission Date: 20141002
  Serious: Yes (Hospitalization)
  Sender: FDA-Public Use
  Company Number: 163-21880-13092874

PATIENT
  Age: 88 Year
  Sex: Female
  Weight: 59 kg

DRUGS (9)
  1. REVLIMID (LENALIDOMIDE) (10 MILLIGRAM, CAPSULES) [Suspect]
     Indication: PLASMA CELL MYELOMA
     Dosage: 10MG, 21 IN 28 D, PO
     Route: 048
     Dates: start: 201207
  2. LEXAPRO (ESCITALOPRAM OXALATE) [Concomitant]
  3. ASPIRIN (ACETYLSALICYLIC ACID) (ENTERIC-COATED TABLET) [Concomitant]
  4. DEXAMETHASONE (DEXAMETHASONE) (TABLETS) [Concomitant]
  5. AVAPRO (IRBESARTAN) [Concomitant]
  6. DONEPEZIL HCL (DONEPEZIL HYDROCHLORIDE) [Concomitant]
  7. ACYCLOVIR (ACICLOVIR) (ACICLOVIR) [Concomitant]
  8. HALOPERIDOL (HALOPERIDOL) (HALOPERIDOL) [Concomitant]
  9. OMEPRAZOLE (OMEPRAZOLE) [Concomitant]

REACTIONS (2)
  - Dehydration [None]
  - Urinary tract infection [None]
